FAERS Safety Report 6531964-8 (Version None)
Quarter: 2010Q1

REPORT INFORMATION
  Report Type: 
  Country: None (occurrence: None)
  Receive Date: 20100108
  Receipt Date: 20091228
  Transmission Date: 20100710
  Serious: Yes (Other)
  Sender: FDA-Public Use
  Company Number: SE-PFIZER INC-2009314526

PATIENT
  Sex: Male

DRUGS (4)
  1. INSPRA [Suspect]
     Dosage: 12.5 MG, DAILY
  2. FURIX [Interacting]
     Dosage: UNK
  3. WARAN [Interacting]
     Dosage: UNK
     Dates: start: 19990101
  4. DIGOXIN [Interacting]
     Dosage: UNK
     Dates: start: 20040101

REACTIONS (13)
  - APNOEA [None]
  - ASTHENIA [None]
  - BLOOD CREATININE INCREASED [None]
  - BLOOD PRESSURE DECREASED [None]
  - DIZZINESS [None]
  - DRUG INTERACTION [None]
  - FLATULENCE [None]
  - INSOMNIA [None]
  - MEDICATION ERROR [None]
  - MUSCLE SPASMS [None]
  - PROTHROMBIN LEVEL ABNORMAL [None]
  - PRURITUS [None]
  - RASH [None]
